FAERS Safety Report 6368712-0 (Version None)
Quarter: 2009Q3

REPORT INFORMATION
  Report Type: 
  Country: None (occurrence: None)
  Receive Date: 20090917
  Receipt Date: 20090917
  Transmission Date: 20100115
  Serious: Yes (Other)
  Sender: FDA-Public Use
  Company Number: None

PATIENT
  Age: 59 Year
  Sex: Male
  Weight: 125 kg

DRUGS (5)
  1. ALBUMIN (HUMAN) [Suspect]
     Indication: BLOOD PRESSURE
     Dosage: 25 GM TOTAL ONCE INTRAVENOUS
     Route: 042
     Dates: start: 20090904
  2. FUROSEMIDE [Concomitant]
  3. DOPAMINE HCL [Concomitant]
  4. CHLORPROPAMIDE [Concomitant]
  5. LEVOTHYROXINE SODIUM [Concomitant]

REACTIONS (2)
  - BLOOD PRESSURE DECREASED [None]
  - NAUSEA [None]
